FAERS Safety Report 8625466-2 (Version None)
Quarter: 2012Q3

REPORT INFORMATION
  Report Type: 
  Country: None (occurrence: None)
  Receive Date: 20120827
  Receipt Date: 20111008
  Transmission Date: 20120928
  Serious: Yes (Death)
  Sender: FDA-Public Use
  Company Number: BR-ROCHE-1003438

PATIENT
  Age: 54 Year
  Sex: Male

DRUGS (3)
  1. XELODA [Suspect]
     Indication: METASTATIC GASTRIC CANCER
     Dates: start: 20090318
  2. HERCEPTIN [Suspect]
     Indication: METASTATIC GASTRIC CANCER
  3. OXALIPLATIN [Suspect]
     Indication: METASTATIC GASTRIC CANCER
     Dates: start: 20090318

REACTIONS (1)
  - DISEASE PROGRESSION [None]
